FAERS Safety Report 9776481 (Version 2)
Quarter: 2014Q1

REPORT INFORMATION
  Report Type: Report from Study
  Country: US (occurrence: US)
  Receive Date: 20131220
  Receipt Date: 20140102
  Transmission Date: 20141002
  Serious: Yes (Hospitalization, Other)
  Sender: FDA-Public Use
  Company Number: US-ABBVIE-13P-163-1179517-00

PATIENT
  Age: 22 Year
  Sex: Male
  Weight: 104.42 kg

DRUGS (6)
  1. HUMIRA [Suspect]
     Indication: CROHN^S DISEASE
     Route: 058
     Dates: start: 201302, end: 201309
  2. HUMIRA [Suspect]
     Route: 058
     Dates: start: 201312
  3. BUDESONIDE [Concomitant]
     Indication: CROHN^S DISEASE
     Dates: end: 201309
  4. PREDNISONE [Concomitant]
     Indication: PRODUCT USED FOR UNKNOWN INDICATION
  5. OXYCODONE [Concomitant]
     Indication: POSTOPERATIVE CARE
     Dates: start: 201309, end: 201311
  6. XANAX [Concomitant]
     Indication: ANXIETY

REACTIONS (7)
  - Procedural complication [Recovered/Resolved]
  - Gastrointestinal anastomotic leak [Recovered/Resolved]
  - Sigmoidectomy [Unknown]
  - Colostomy closure [Unknown]
  - Ileostomy closure [Unknown]
  - Colostomy [Unknown]
  - Intestinal anastomosis [Unknown]
